FAERS Safety Report 7075026-2 (Version None)
Quarter: 2010Q4

REPORT INFORMATION
  Report Type: 
  Country: None (occurrence: None)
  Receive Date: 20101029
  Receipt Date: 20100226
  Transmission Date: 20110411
  Serious: No
  Sender: FDA-Public Use
  Company Number: US-WYE-H13111210

PATIENT
  Age: 47 Year
  Sex: Male
  Weight: 72.19 kg

DRUGS (2)
  1. ADVIL PM [Suspect]
     Indication: JOINT SPRAIN
     Dosage: 2 CAPLETS AS NEEDED
     Route: 048
     Dates: start: 20100101, end: 20100101
  2. ENBREL [Concomitant]

REACTIONS (1)
  - DRUG EFFECT DECREASED [None]
